FAERS Safety Report 7306699-4 (Version None)
Quarter: 2011Q1

REPORT INFORMATION
  Report Type: 
  Country: None (occurrence: None)
  Receive Date: 20110222
  Receipt Date: 20110208
  Transmission Date: 20110831
  Serious: Yes (Other)
  Sender: FDA-Public Use
  Company Number: DE-GENENTECH-313512

PATIENT

DRUGS (3)
  1. LUCENTIS [Suspect]
     Indication: MACULAR DEGENERATION
     Dosage: UNK
     Route: 031
     Dates: start: 20070621
  2. LUCENTIS [Suspect]
     Dosage: UNK
     Route: 031
     Dates: start: 20101022
  3. LUCENTIS [Suspect]
     Dosage: UNK
     Route: 031
     Dates: start: 20101209

REACTIONS (1)
  - VISUAL ACUITY REDUCED [None]
